FAERS Safety Report 9204719 (Version 1)
Quarter: 2013Q2

REPORT INFORMATION
  Report Type: Spontaneous
  Country: US (occurrence: US)
  Receive Date: 20130402
  Receipt Date: 20130402
  Transmission Date: 20140414
  Serious: Yes (Life-Threatening)
  Sender: FDA-Public Use
  Company Number: US-GLAXOSMITHKLINE-A1017842A

PATIENT
  Sex: Male

DRUGS (1)
  1. NICODERM CQ CLEAR 21MG [Suspect]
     Indication: SMOKING CESSATION THERAPY
     Route: 062
     Dates: end: 20130310

REACTIONS (10)
  - Tobacco poisoning [Unknown]
  - Decreased appetite [Unknown]
  - Malaise [Unknown]
  - Asthenia [Unknown]
  - Hyperhidrosis [Unknown]
  - Vomiting [Unknown]
  - Abdominal pain upper [Unknown]
  - Diarrhoea [Unknown]
  - Myalgia [Unknown]
  - Nausea [Unknown]
